FAERS Safety Report 9188717 (Version 2)
Quarter: 2013Q2

REPORT INFORMATION
  Report Type: Spontaneous
  Country: AU (occurrence: AU)
  Receive Date: 20130325
  Receipt Date: 20130418
  Transmission Date: 20140414
  Serious: Yes (Death, Other)
  Sender: FDA-Public Use
  Company Number: AU-B.I. PHARMACEUTICALS,INC./RIDGEFIELD-2013-AU-00334AU

PATIENT
  Age: 78 Year
  Sex: Male
  Weight: 51 kg

DRUGS (6)
  1. PRADAXA [Suspect]
     Indication: CEREBROVASCULAR ACCIDENT PROPHYLAXIS
     Dates: start: 20110809, end: 201208
  2. PRADAXA [Suspect]
     Indication: ATRIAL FIBRILLATION
  3. PROTON PUMP INHIBITORS [Concomitant]
  4. AMIODARONE [Concomitant]
  5. THYROXINE [Concomitant]
     Dosage: 50 MCG
  6. CLEXANE [Concomitant]
     Dosage: 80 MG

REACTIONS (9)
  - Pleural mesothelioma malignant [Fatal]
  - Emphysema [Unknown]
  - Pleural effusion [Unknown]
  - Atelectasis [Unknown]
  - Atrial fibrillation [Unknown]
  - Ascites [Unknown]
  - Pleural fibrosis [Unknown]
  - Dyspnoea [Unknown]
  - Cough [Unknown]
